FAERS Safety Report 5553887-3 (Version None)
Quarter: 2007Q4

REPORT INFORMATION
  Report Type: 
  Country: None (occurrence: None)
  Receive Date: 20071212
  Receipt Date: 20071212
  Transmission Date: 20080405
  Serious: Yes (Life-Threatening, Hospitalization, Other)
  Sender: FDA-Public Use
  Company Number: None

PATIENT
  Age: 67 Year
  Sex: Female

DRUGS (2)
  1. VERSED [Suspect]
  2. FENTANYL [Suspect]

REACTIONS (7)
  - CARDIO-RESPIRATORY ARREST [None]
  - ERYTHEMA [None]
  - HEPATIC LESION [None]
  - HYPERTENSION [None]
  - HYPOTENSION [None]
  - LABILE BLOOD PRESSURE [None]
  - LIVER FUNCTION TEST ABNORMAL [None]
